FAERS Safety Report 4598885-1 (Version None)
Quarter: 2005Q1

REPORT INFORMATION
  Report Type: 
  Country: None (occurrence: None)
  Receive Date: 20050301
  Receipt Date: 20050215
  Transmission Date: 20050727
  Serious: Yes (Hospitalization)
  Sender: FDA-Public Use
  Company Number: CHPA2005US00713

PATIENT
  Age: 50 Year
  Sex: Female
  Weight: 81.6 kg

DRUGS (4)
  1. CONTROL STEP 1 [Suspect]
     Indication: SMOKING CESSATION THERAPY
     Dosage: 21 MG, ONCE/SINGLE, TRANSDERMAL
     Route: 062
     Dates: start: 20050213, end: 20050214
  2. KLONOPIN [Concomitant]
  3. BUPROPION (BUPROPION) [Concomitant]
  4. EFFEXOR [Concomitant]

REACTIONS (4)
  - ANGINA PECTORIS [None]
  - HEART RATE IRREGULAR [None]
  - HYPOTENSION [None]
  - MYOCARDIAL INFARCTION [None]
